FAERS Safety Report 14681558 (Version 1)
Quarter: 2018Q1

REPORT INFORMATION
  Report Type: Spontaneous
  Country: US (occurrence: US)
  Receive Date: 20180326
  Receipt Date: 20180326
  Transmission Date: 20180509
  Serious: No
  Sender: FDA-Public Use
  Company Number: US-KASTLE THERAPEUTICS, LLC-2017KAS000032

PATIENT
  Age: 62 Year
  Sex: Male

DRUGS (2)
  1. KYNAMRO [Suspect]
     Active Substance: MIPOMERSEN SODIUM
     Indication: TYPE IIA HYPERLIPIDAEMIA
     Dosage: WEEKLY ON TUESDAY
     Route: 058
     Dates: start: 20170516
  2. KYNAMRO [Suspect]
     Active Substance: MIPOMERSEN SODIUM
     Indication: TYPE IIA HYPERLIPIDAEMIA

REACTIONS (8)
  - Influenza like illness [Unknown]
  - Injection site swelling [Unknown]
  - Cluster headache [Unknown]
  - Injection site pain [Unknown]
  - Injection site mass [Unknown]
  - Injection site bruising [Unknown]
  - Injection site discolouration [Unknown]
  - Malaise [Unknown]

NARRATIVE: CASE EVENT DATE: 2017
